FAERS Safety Report 13070409 (Version 7)
Quarter: 2018Q1

REPORT INFORMATION
  Report Type: Report from Study
  Country: JP (occurrence: JP)
  Receive Date: 20161228
  Receipt Date: 20180306
  Transmission Date: 20180508
  Serious: Yes (Hospitalization, Other)
  Sender: FDA-Public Use
  Company Number: JP-ALXN-A201608341AA

PATIENT
  Age: 2 Year
  Sex: Female

DRUGS (6)
  1. STRENSIQ [Suspect]
     Active Substance: ASFOTASE ALFA
     Dosage: 1 MG/KG, 6 TIMES A WEEK
     Route: 058
     Dates: start: 20170606, end: 20170905
  2. STRENSIQ [Suspect]
     Active Substance: ASFOTASE ALFA
     Indication: HYPOPHOSPHATASIA
     Dosage: 2 MG/KG, TIW
     Route: 058
     Dates: start: 20150911, end: 20170605
  3. STRENSIQ [Suspect]
     Active Substance: ASFOTASE ALFA
     Dosage: 2 MG/KG, UNK
     Route: 058
     Dates: start: 20170906
  4. STRENSIQ [Suspect]
     Active Substance: ASFOTASE ALFA
     Dosage: 3 MG/KG, TIW
     Route: 058
     Dates: start: 20171115
  5. DIAPP [Concomitant]
     Active Substance: DIAZEPAM
     Indication: PROPHYLAXIS
     Dosage: 2 MG, BID
     Route: 061
     Dates: start: 20170324, end: 20170324
  6. L-KEFLEX [Concomitant]
     Indication: PROPHYLAXIS
     Dosage: 200 MG, QD
     Route: 048
     Dates: start: 20170307, end: 20170310

REACTIONS (17)
  - Febrile convulsion [Recovered/Resolved]
  - Pyrexia [Recovered/Resolved]
  - Gait disturbance [Unknown]
  - Bronchitis [Recovered/Resolved]
  - Respiratory syncytial virus infection [Recovered/Resolved]
  - Streptococcal infection [Recovered/Resolved]
  - Hospitalisation [Unknown]
  - Incorrect dose administered [Not Recovered/Not Resolved]
  - Rickets [Recovered/Resolved]
  - Tooth loss [Unknown]
  - Drug ineffective [Unknown]
  - Condition aggravated [Recovered/Resolved]
  - Gastroenteritis [Recovered/Resolved]
  - Nephrocalcinosis [Not Recovered/Not Resolved]
  - Febrile convulsion [Recovered/Resolved]
  - Rickets [Not Recovered/Not Resolved]
  - Condition aggravated [Not Recovered/Not Resolved]

NARRATIVE: CASE EVENT DATE: 20160925
